FAERS Safety Report 8858025 (Version 1)
Quarter: 2012Q4

REPORT INFORMATION
  Report Type: 
  Country: US (occurrence: US)
  Receive Date: 20121024
  Receipt Date: 20121024
  Transmission Date: 20130627
  Serious: No
  Sender: FDA-Public Use
  Company Number: US-AMGEN-USASP2012003675

PATIENT
  Sex: Female

DRUGS (8)
  1. ENBREL [Suspect]
     Indication: PRODUCT USED FOR UNKNOWN INDICATION
     Dosage: 50 mg, qwk
     Route: 058
  2. RESTASIS [Concomitant]
  3. PREMARIN [Concomitant]
     Dosage: .3 mg, UNK
  4. MULTIVITAMIN                       /00097801/ [Concomitant]
  5. OMEGA                              /00661201/ [Concomitant]
     Dosage: 1000 mg, UNK
  6. CALCIUM 500+D [Concomitant]
  7. VITAMIN D /00107901/ [Concomitant]
  8. VITAMIN B C COMPLEX [Concomitant]

REACTIONS (4)
  - Blister [Unknown]
  - Erythema [Unknown]
  - Furuncle [Unknown]
  - Pruritus [Unknown]
